FAERS Safety Report 9222424 (Version 1)
Quarter: 2013Q1

REPORT INFORMATION
  Report Type: Spontaneous
  Country: US (occurrence: None)
  Receive Date: 20120914
  Receipt Date: 20120914
  Transmission Date: 20140127
  Serious: Yes (Other)
  Sender: FDA-Public Use
  Company Number: JPI-P-021928

PATIENT
  Age: 50 Year
  Sex: Female
  Weight: 65.77 kg

DRUGS (7)
  1. XYREM (500 MILLIGRAM/MILLILITERS, SOLUTION) (SODIUM OXYBATE) [Suspect]
     Indication: NARCOLEPSY
     Route: 048
     Dates: start: 200903
  2. LEVOTHYROXINE SODIUM [Concomitant]
  3. METOPROLOL [Concomitant]
  4. MULTIVITAMINS [Concomitant]
  5. CALCIUM [Concomitant]
  6. VITAMIN D3 [Concomitant]
  7. IBUPRFEN [Concomitant]

REACTIONS (5)
  - Sleep apnoea syndrome [None]
  - Weight decreased [None]
  - Fatigue [None]
  - Periodic limb movement disorder [None]
  - Condition aggravated [None]
